FAERS Safety Report 7802604-2 (Version None)
Quarter: 2011Q4

REPORT INFORMATION
  Report Type: 
  Country: None (occurrence: None)
  Receive Date: 20111007
  Receipt Date: 20111003
  Transmission Date: 20120403
  Serious: Yes (Hospitalization)
  Sender: FDA-Public Use
  Company Number: JP-B.I. PHARMACEUTICALS,INC./RIDGEFIELD-2011-BP-23458NB

PATIENT
  Age: 84 Year
  Sex: Female

DRUGS (11)
  1. MOTILIUM [Concomitant]
     Dosage: NR
     Route: 065
  2. VOLTAREN [Concomitant]
     Dosage: NR
     Route: 065
  3. AMIKACIN SULFATE [Concomitant]
     Dosage: NR
     Route: 065
  4. ALDACTONE [Suspect]
     Dosage: 25 MG
     Route: 048
  5. LANIRAPID [Suspect]
     Dosage: 0.05 MG
     Route: 048
  6. UNASYN [Concomitant]
     Dosage: NR
     Route: 065
  7. PRADAXA [Suspect]
     Dosage: 75 MG
     Route: 048
     Dates: start: 20110601, end: 20110906
  8. LOXONIN [Concomitant]
     Dosage: NR
     Route: 065
  9. PRIMPERAN TAB [Concomitant]
     Dosage: NR
     Route: 065
  10. PRADAXA [Suspect]
     Indication: ATRIAL FIBRILLATION
     Dosage: 110 MG
     Route: 048
     Dates: start: 20110501, end: 20110601
  11. VERAPAMIL HCL [Suspect]
     Indication: ATRIAL FIBRILLATION
     Dosage: 120 MG
     Route: 048

REACTIONS (3)
  - RENAL FAILURE ACUTE [None]
  - INFECTION [None]
  - ANAEMIA [None]
